FAERS Safety Report 9761625 (Version 1)
Quarter: 2013Q4

REPORT INFORMATION
  Report Type: Other
  Country: GB (occurrence: GB)
  Receive Date: 20131216
  Receipt Date: 20131216
  Transmission Date: 20140711
  Serious: Yes (Hospitalization)
  Sender: FDA-Public Use
  Company Number: GB-PERRIGO-13GB012634

PATIENT
  Age: 59 Year
  Sex: Male

DRUGS (11)
  1. DEXSOL 0.4MG/ML PL00427/0137 [Suspect]
     Indication: PLASMA CELL MYELOMA
     Dosage: 40 MG, QD
     Route: 048
     Dates: start: 20120904
  2. DEXSOL 0.4MG/ML PL00427/0137 [Suspect]
     Dosage: 8 MG
     Route: 041
     Dates: start: 20120904
  3. REVLIMID [Suspect]
     Indication: PLASMA CELL MYELOMA
     Dosage: 25 MG, QD
     Route: 048
     Dates: start: 20120904
  4. ELOTUZUMAB [Suspect]
     Indication: PLASMA CELL MYELOMA
     Dosage: 750 MILLIGRAM
     Route: 041
     Dates: start: 20120904
  5. ZOMETA [Concomitant]
     Indication: PRODUCT USED FOR UNKNOWN INDICATION
     Dosage: UNK
     Route: 065
     Dates: start: 201201
  6. ALLOPURINOL [Concomitant]
     Indication: PRODUCT USED FOR UNKNOWN INDICATION
     Dosage: UNK
     Route: 065
     Dates: start: 20120904
  7. ASPIRINE [Concomitant]
     Indication: PRODUCT USED FOR UNKNOWN INDICATION
     Dosage: UNK
     Route: 065
     Dates: start: 20120904
  8. CO-TRIMOXAZOLE [Concomitant]
     Indication: PRODUCT USED FOR UNKNOWN INDICATION
     Dosage: UNK
     Route: 065
     Dates: start: 20120904
  9. ACICLOVIR [Concomitant]
     Indication: PRODUCT USED FOR UNKNOWN INDICATION
     Dosage: UNK
     Route: 065
     Dates: start: 20120904
  10. LANSOPRAZOLE [Concomitant]
     Indication: PRODUCT USED FOR UNKNOWN INDICATION
     Dosage: UNK
     Route: 065
     Dates: start: 20120904
  11. CANESTEN [Concomitant]
     Indication: PRODUCT USED FOR UNKNOWN INDICATION
     Dosage: UNK
     Route: 065
     Dates: start: 20120904

REACTIONS (1)
  - Febrile neutropenia [Recovered/Resolved]
